FAERS Safety Report 15466751 (Version 1)
Quarter: 2018Q4

REPORT INFORMATION
  Report Type: Spontaneous
  Country: IT (occurrence: IT)
  Receive Date: 20181005
  Receipt Date: 20181005
  Transmission Date: 20190204
  Serious: Yes (Other)
  Sender: FDA-Public Use
  Company Number: IT-TEVA-2018-IT-960966

PATIENT
  Age: 71 Year
  Sex: Female

DRUGS (2)
  1. NORMIX [Concomitant]
     Active Substance: RIFAXIMIN
     Route: 048
  2. TAMOXIFENE CITRATO [Suspect]
     Active Substance: TAMOXIFEN
     Indication: BREAST CANCER
     Dosage: 20 MILLIGRAM DAILY;
     Route: 048
     Dates: start: 20071019, end: 20080306

REACTIONS (4)
  - Pollakiuria [Unknown]
  - Cognitive disorder [Unknown]
  - Blood urine [Unknown]
  - Micturition urgency [Unknown]

NARRATIVE: CASE EVENT DATE: 20080306
